FAERS Safety Report 5433850-3 (Version None)
Quarter: 2007Q3

REPORT INFORMATION
  Report Type: 
  Country: None (occurrence: None)
  Receive Date: 20070829
  Receipt Date: 20070813
  Transmission Date: 20080115
  Serious: Yes (Hospitalization)
  Sender: FDA-Public Use
  Company Number: S07-FRA-01446-01

PATIENT
  Age: 76 Year
  Sex: Female

DRUGS (9)
  1. ESCITALOPRAM [Suspect]
     Dates: start: 20070129, end: 20070207
  2. LODOZ [Suspect]
     Indication: HYPERTENSION
     Dosage: 5 MG QD PO
     Route: 048
     Dates: end: 20070205
  3. PHYSIOTENS (MOXONIDINE) [Suspect]
     Indication: HYPERTENSION
     Dosage: 0.4 MG QD PO
     Route: 048
     Dates: end: 20070207
  4. OLMETEC  /GFR/ (OLMESARTAN MEDOXOMIL) [Suspect]
     Dosage: 20 MG QD PO
     Route: 048
  5. TEMESTA (LORASEPAM) [Suspect]
     Dosage: 1 MG QD PO
     Route: 048
  6. LANSOPRAZOLE [Suspect]
     Dosage: 30 MG QD PO
     Route: 048
  7. PLAVIX [Concomitant]
  8. FENOFIBRATE [Concomitant]
  9. FLECAINIDE ACETATE [Concomitant]

REACTIONS (5)
  - BLOOD PRESSURE INCREASED [None]
  - HAEMOCONCENTRATION [None]
  - HYPONATRAEMIA [None]
  - LOSS OF CONSCIOUSNESS [None]
  - ORTHOSTATIC HYPOTENSION [None]
